FAERS Safety Report 19480607 (Version 1)
Quarter: 2021Q3

REPORT INFORMATION
  Report Type: Spontaneous
  Country: KR (occurrence: KR)
  Receive Date: 20210701
  Receipt Date: 20210701
  Transmission Date: 20211014
  Serious: Yes (Hospitalization, Other)
  Sender: FDA-Public Use
  Company Number: KR-ACCORD-229740

PATIENT
  Age: 77 Year
  Sex: Male

DRUGS (3)
  1. IODINE. [Concomitant]
     Active Substance: IODINE
     Dosage: (ETHIODIZED OIL) INJECTION
  2. CISPLATIN. [Suspect]
     Active Substance: CISPLATIN
     Indication: HEPATOCELLULAR CARCINOMA
  3. CISPLATIN. [Suspect]
     Active Substance: CISPLATIN
     Indication: HEPATOCELLULAR CARCINOMA

REACTIONS (3)
  - Haemoglobin decreased [Recovered/Resolved]
  - Tumour rupture [Recovered/Resolved]
  - Haemoperitoneum [Recovered/Resolved]
